FAERS Safety Report 16207511 (Version 2)
Quarter: 2019Q2

REPORT INFORMATION
  Report Type: Spontaneous
  Country: US (occurrence: US)
  Receive Date: 20190417
  Receipt Date: 20190507
  Transmission Date: 20190711
  Serious: No
  Sender: FDA-Public Use
  Company Number: US-PFIZER INC-2019162877

PATIENT
  Age: 73 Year
  Sex: Male

DRUGS (1)
  1. EUCRISA [Suspect]
     Active Substance: CRISABOROLE
     Dosage: UNK, APPLY TO AFFECTED AREAS
     Dates: start: 201902

REACTIONS (1)
  - Therapeutic product effect incomplete [Unknown]
